FAERS Safety Report 23796242 (Version 1)
Quarter: 2024Q2

REPORT INFORMATION
  Report Type: Report from Study
  Country: IT (occurrence: IT)
  Receive Date: 20240430
  Receipt Date: 20240430
  Transmission Date: 20240716
  Serious: Yes (Other)
  Sender: FDA-Public Use
  Company Number: IT-JNJFOC-20240465185

PATIENT

DRUGS (1)
  1. IMBRUVICA [Suspect]
     Active Substance: IBRUTINIB
     Indication: Chronic lymphocytic leukaemia
     Route: 048

REACTIONS (5)
  - Cytopenia [Unknown]
  - Gastrointestinal toxicity [Unknown]
  - Cardiotoxicity [Unknown]
  - Haematotoxicity [Unknown]
  - Haemorrhage [Unknown]
